FAERS Safety Report 5320129-3 (Version None)
Quarter: 2007Q2

REPORT INFORMATION
  Report Type: 
  Country: None (occurrence: None)
  Receive Date: 20070502
  Receipt Date: 20070417
  Transmission Date: 20071010
  Serious: Yes (Other)
  Sender: FDA-Public Use
  Company Number: US019873

PATIENT
  Age: 45 Year
  Sex: Male
  Weight: 226.7985 kg

DRUGS (5)
  1. ACTIQ [Suspect]
     Indication: ARTHRALGIA
     Dosage: 800 UG QD BUCCAL
     Route: 002
     Dates: start: 20061001
  2. ACTIQ [Suspect]
     Indication: BACK PAIN
     Dosage: 800 UG QD BUCCAL
     Route: 002
     Dates: start: 20061001
  3. ACTIQ [Suspect]
     Indication: NERVE INJURY
     Dosage: 800 UG QD BUCCAL
     Route: 002
     Dates: start: 20061001
  4. PERCOCET [Concomitant]
  5. OXYCONTIN [Concomitant]

REACTIONS (8)
  - AGEUSIA [None]
  - CONDITION AGGRAVATED [None]
  - DENTAL CARIES [None]
  - GLOSSITIS [None]
  - ORAL PAIN [None]
  - TOOTH FRACTURE [None]
  - TOOTH LOSS [None]
  - WEIGHT DECREASED [None]
